FAERS Safety Report 18048820 (Version 1)
Quarter: 2020Q3

REPORT INFORMATION
  Report Type: Spontaneous
  Country: FR (occurrence: FR)
  Receive Date: 20200721
  Receipt Date: 20200721
  Transmission Date: 20201103
  Serious: Yes (Hospitalization)
  Sender: FDA-Public Use
  Company Number: FR-CADILA HEALTHCARE LIMITED-FR-ZYDUS-024361

PATIENT

DRUGS (3)
  1. LARGACTIL [Suspect]
     Active Substance: CHLORPROMAZINE
     Indication: PSYCHOTIC DISORDER
     Dosage: 100 MILLIGRAM,4 PERCENT, ORAL DROPS SOLUTION,(INTERVAL :1 DAYS)
     Route: 048
     Dates: start: 20180427
  2. LOXAPAC [Suspect]
     Active Substance: LOXAPINE
     Indication: PSYCHOTIC DISORDER
     Dosage: 150 MILLIGRAM,DRINKABLE SOLUTION,(INTERVAL :1 DAYS)
     Route: 048
     Dates: start: 20180419
  3. RISPERIDONE. [Suspect]
     Active Substance: RISPERIDONE
     Indication: PSYCHOTIC DISORDER
     Dosage: 4 MILLIGRAM,(INTERVAL :1 DAYS)
     Route: 048
     Dates: start: 20180420

REACTIONS (2)
  - Pleural effusion [Recovered/Resolved]
  - Pulmonary embolism [Recovered/Resolved with Sequelae]

NARRATIVE: CASE EVENT DATE: 20180426
